FAERS Safety Report 20215935 (Version 1)
Quarter: 2021Q4

REPORT INFORMATION
  Report Type: Other
  Country: IT (occurrence: IT)
  Receive Date: 20211222
  Receipt Date: 20211222
  Transmission Date: 20220303
  Serious: Yes (Death, Hospitalization)
  Sender: FDA-Public Use
  Company Number: IT-CELLTRION HEALTHCARE HUNGARY KFT-2021IT016145

PATIENT

DRUGS (2)
  1. PREDNISONE [Suspect]
     Active Substance: PREDNISONE
     Indication: Necrotising myositis
     Route: 065
  2. RITUXIMAB [Suspect]
     Active Substance: RITUXIMAB
     Indication: Necrotising myositis
     Dosage: 1 G, (LAST INFUSION 1.5 MO BEFORE THE INFECTION)
     Route: 041

REACTIONS (3)
  - COVID-19 pneumonia [Fatal]
  - Respiratory failure [Fatal]
  - Off label use [Fatal]
